FAERS Safety Report 10644737 (Version 2)
Quarter: 2017Q1

REPORT INFORMATION
  Report Type: Report from Study
  Country: BR (occurrence: BR)
  Receive Date: 20141211
  Receipt Date: 20170316
  Transmission Date: 20170428
  Serious: Yes (Other)
  Sender: FDA-Public Use
  Company Number: BR-ROCHE-1506043

PATIENT
  Age: 54 Year
  Sex: Female
  Weight: 57 kg

DRUGS (5)
  1. LOSARTAN. [Concomitant]
     Active Substance: LOSARTAN
     Indication: HYPERTENSION
  2. ACTEMRA [Suspect]
     Active Substance: TOCILIZUMAB
     Indication: RHEUMATOID ARTHRITIS
     Route: 042
     Dates: start: 20150818
  3. ANGIPRESS (BRAZIL) [Concomitant]
     Indication: HYPERTENSION
  4. ARAVA [Concomitant]
     Active Substance: LEFLUNOMIDE
  5. MABTHERA [Suspect]
     Active Substance: RITUXIMAB
     Indication: RHEUMATOID ARTHRITIS
     Route: 042
     Dates: start: 20141204

REACTIONS (5)
  - Dysphonia [Unknown]
  - Pulmonary oedema [Unknown]
  - Oropharyngeal pain [Not Recovered/Not Resolved]
  - Urticaria [Unknown]
  - Cough [Unknown]

NARRATIVE: CASE EVENT DATE: 20141204
